FAERS Safety Report 7075341-2 (Version None)
Quarter: 2010Q4

REPORT INFORMATION
  Report Type: 
  Country: None (occurrence: None)
  Receive Date: 20101030
  Receipt Date: 20100813
  Transmission Date: 20110411
  Serious: No
  Sender: FDA-Public Use
  Company Number: US-WYE-H16936410

PATIENT
  Age: 58 Year
  Sex: Female
  Weight: 54.48 kg

DRUGS (2)
  1. ALAVERT D-12 [Suspect]
     Indication: HYPERSENSITIVITY
     Route: 048
     Dates: start: 20100812
  2. VITAMINS [Concomitant]

REACTIONS (2)
  - HYPERSENSITIVITY [None]
  - SALIVARY GLAND ENLARGEMENT [None]
